FAERS Safety Report 24281152 (Version 1)
Quarter: 2024Q3

REPORT INFORMATION
  Report Type: Spontaneous
  Country: PT (occurrence: PT)
  Receive Date: 20240904
  Receipt Date: 20240904
  Transmission Date: 20241017
  Serious: Yes (Other)
  Sender: AUROBINDO
  Company Number: PT-AUROBINDO-AUR-APL-2024-037308

PATIENT
  Age: 76 Year
  Sex: Female

DRUGS (3)
  1. ALLOPURINOL [Suspect]
     Active Substance: ALLOPURINOL
     Indication: Chronic myeloid leukaemia
     Dosage: 300 MILLIGRAM
     Route: 065
  2. IMATINIB [Suspect]
     Active Substance: IMATINIB
     Indication: Chronic myeloid leukaemia
     Dosage: 400 MILLIGRAM
     Route: 065
  3. IMATINIB [Suspect]
     Active Substance: IMATINIB
     Dosage: 200 MILLIGRAM
     Route: 065

REACTIONS (6)
  - Toxic skin eruption [Recovered/Resolved]
  - Drug eruption [Unknown]
  - Rash erythematous [Unknown]
  - Face oedema [Unknown]
  - Localised oedema [Unknown]
  - Off label use [Unknown]
